FAERS Safety Report 7390965-0 (Version None)
Quarter: 2011Q2

REPORT INFORMATION
  Report Type: 
  Country: None (occurrence: None)
  Receive Date: 20110404
  Receipt Date: 20110330
  Transmission Date: 20111010
  Serious: No
  Sender: FDA-Public Use
  Company Number: US-PFIZER INC-2011071260

PATIENT
  Sex: Female

DRUGS (2)
  1. ADVIL CONGESTION RELIEF [Suspect]
     Indication: SINUS DISORDER
     Dosage: UNK, AS NEEDED
     Route: 048
     Dates: end: 20110320
  2. ADVIL CONGESTION RELIEF [Suspect]
     Indication: HEADACHE

REACTIONS (2)
  - CHILLS [None]
  - PRODUCT TASTE ABNORMAL [None]
